FAERS Safety Report 9068480 (Version 1)
Quarter: 2013Q1

REPORT INFORMATION
  Report Type: Spontaneous
  Country: US (occurrence: None)
  Receive Date: 20130212
  Receipt Date: 20130212
  Transmission Date: 20140127
  Serious: Yes (Other)
  Sender: FDA-Public Use
  Company Number: None

PATIENT
  Sex: Female
  Weight: 44.45 kg

DRUGS (5)
  1. NAMENDA [Suspect]
     Dosage: 5 MG -10-15 MG
     Route: 048
     Dates: start: 20130108, end: 20130201
  2. NEXIUM [Concomitant]
  3. LOSORTAN POTASSIUM [Concomitant]
  4. METROPOLOL TARTRATE [Concomitant]
  5. WARFARIN [Concomitant]

REACTIONS (7)
  - Depression [None]
  - Insomnia [None]
  - Agitation [None]
  - Feeling abnormal [None]
  - Sluggishness [None]
  - VIIth nerve paralysis [None]
  - Feeling jittery [None]
